FAERS Safety Report 17018527 (Version 2)
Quarter: 2020Q4

REPORT INFORMATION
  Report Type: Spontaneous
  Country: ZA (occurrence: ZA)
  Receive Date: 20191111
  Receipt Date: 20201028
  Transmission Date: 20210113
  Serious: Yes (Hospitalization, Other)
  Sender: FDA-Public Use
  Company Number: PHHY2019ZA030537

PATIENT
  Age: 75 Year
  Sex: Female

DRUGS (2)
  1. ESTRADOT [Suspect]
     Active Substance: ESTRADIOL
     Dosage: 50 UG, Q2W
     Route: 003
  2. ESTRADOT [Suspect]
     Active Substance: ESTRADIOL
     Indication: HORMONE LEVEL ABNORMAL
     Dosage: 50 UG, QW
     Route: 062

REACTIONS (1)
  - Ulcer haemorrhage [Recovering/Resolving]

NARRATIVE: CASE EVENT DATE: 20190923
